FAERS Safety Report 14238805 (Version 1)
Quarter: 2017Q4

REPORT INFORMATION
  Report Type: Spontaneous
  Country: US (occurrence: None)
  Receive Date: 20171129
  Receipt Date: 20171129
  Transmission Date: 20180321
  Serious: Yes (Hospitalization)
  Sender: FDA-Public Use
  Company Number: None

PATIENT
  Age: 66 Year
  Sex: Male
  Weight: 37.84 kg

DRUGS (21)
  1. ALLOPURINOL. [Concomitant]
     Active Substance: ALLOPURINOL
  2. PROCHLORPERAZINE. [Concomitant]
     Active Substance: PROCHLORPERAZINE
  3. ZOLPIDEM [Concomitant]
     Active Substance: ZOLPIDEM\ZOLPIDEM TARTRATE
  4. DEXAMETHASONE. [Suspect]
     Active Substance: DEXAMETHASONE
     Dates: end: 20171114
  5. OMEPRAZOLE. [Concomitant]
     Active Substance: OMEPRAZOLE
  6. OXYCODONE [Concomitant]
     Active Substance: OXYCODONE
  7. VELCADE [Suspect]
     Active Substance: BORTEZOMIB
     Dates: end: 20171106
  8. FETZIMA [Concomitant]
     Active Substance: LEVOMILNACIPRAN HYDROCHLORIDE
  9. MULTIPLE VITAMIN [Concomitant]
     Active Substance: VITAMINS
  10. PYRIDOXINE HCL (VITAMIN B-6) [Concomitant]
  11. ONDANSETRON [Concomitant]
     Active Substance: ONDANSETRON
  12. TRAZODONE [Concomitant]
     Active Substance: TRAZODONE HYDROCHLORIDE
  13. ASCORBIC ACID. [Concomitant]
     Active Substance: ASCORBIC ACID
  14. ASPIRIN. [Concomitant]
     Active Substance: ASPIRIN
  15. ACYCLOVIR. [Concomitant]
     Active Substance: ACYCLOVIR
  16. CALCIUM CARB-CHOLECALCIFEROL [Concomitant]
  17. NYSTATIN. [Concomitant]
     Active Substance: NYSTATIN
  18. LENALIDOMIDE (CC-5013) [Suspect]
     Active Substance: LENALIDOMIDE
     Dates: end: 20171116
  19. LEVOTHYROXINE. [Concomitant]
     Active Substance: LEVOTHYROXINE
  20. MELOXICAM. [Concomitant]
     Active Substance: MELOXICAM
  21. TAMSULOSIN [Concomitant]
     Active Substance: TAMSULOSIN

REACTIONS (11)
  - Constipation [None]
  - Pyrexia [None]
  - Chills [None]
  - Streptococcus test positive [None]
  - Chest pain [None]
  - Bacterial infection [None]
  - Sedation [None]
  - Muscular weakness [None]
  - Dyspnoea [None]
  - Contusion [None]
  - Back pain [None]

NARRATIVE: CASE EVENT DATE: 20171116
